FAERS Safety Report 7897219-4 (Version None)
Quarter: 2011Q4

REPORT INFORMATION
  Report Type: 
  Country: None (occurrence: None)
  Receive Date: 20111107
  Receipt Date: 20111027
  Transmission Date: 20120403
  Serious: Yes (Hospitalization)
  Sender: FDA-Public Use
  Company Number: US-BAYER-201016868NA

PATIENT
  Age: 26 Year
  Sex: Female
  Weight: 63.492 kg

DRUGS (16)
  1. YASMIN [Suspect]
     Indication: CONTRACEPTION
     Dosage: UNK UNK, QD
     Route: 048
     Dates: start: 20071201, end: 20081201
  2. ZOLPIDEM [Concomitant]
     Dosage: ONE TABLET EVERY NIGHT
     Route: 048
  3. SIMVASTATIN [Concomitant]
     Indication: LOW DENSITY LIPOPROTEIN INCREASED
  4. DICLOFENAC SODIUM [Concomitant]
     Dosage: ONE TABLET EVERY 6-8 HOURS
  5. HYDROCHLOROTHIAZIDE [Concomitant]
     Dosage: ONE TABLET DAILY
     Route: 048
  6. NAPROXEN [Concomitant]
     Dosage: ONE TABLET EVERY 12 HOURS
     Route: 048
  7. PROMETHAZINE [Concomitant]
     Dosage: ONE TABLET EVERY 6 HOURS
     Route: 048
  8. VALTREX [Concomitant]
     Dosage: ONE TABLET DAILY
     Route: 048
  9. FERROUS SULFATE TAB [Concomitant]
     Dosage: DAILY DOSE 325 MG
     Route: 048
  10. LORTAB [Concomitant]
     Dosage: 5/500, ONE TABLET EVERY 6 HOURS
  11. LEVNEX [Concomitant]
  12. ORTHO TRI-CYCLEN [Concomitant]
     Dosage: UNK UNK, QD
  13. TISSUE PLASMINOGEN ACTIVATOR [Concomitant]
  14. DROSPIRENONE AND ETHINYL ESTRADIOL [Suspect]
     Indication: CONTRACEPTION
     Dosage: UNK UNK, QD
     Route: 048
     Dates: start: 20071201, end: 20081201
  15. IBUPROFEN [Concomitant]
     Dosage: ONE TABLET EVERY 8 HOURS
     Route: 048
  16. LISINOPRIL [Concomitant]

REACTIONS (2)
  - INJURY [None]
  - CEREBROVASCULAR ACCIDENT [None]
